FAERS Safety Report 7873168-2 (Version None)
Quarter: 2011Q4

REPORT INFORMATION
  Report Type: 
  Country: None (occurrence: None)
  Receive Date: 20111030
  Receipt Date: 20110425
  Transmission Date: 20120403
  Serious: No
  Sender: FDA-Public Use
  Company Number: US-AMGEN-USASP2011021398

PATIENT
  Age: 36 Year
  Sex: Female
  Weight: 47.166 kg

DRUGS (5)
  1. MULTIVITAMIN                       /00097801/ [Concomitant]
  2. CRANBERRY                          /01512301/ [Concomitant]
  3. ENBREL [Suspect]
     Indication: PRODUCT USED FOR UNKNOWN INDICATION
     Dosage: 50 MG, 2 TIMES/WK
     Route: 058
  4. CALCIUM D                          /00944201/ [Concomitant]
  5. ALBUTEROL [Concomitant]

REACTIONS (1)
  - DIZZINESS [None]
